FAERS Safety Report 5451966-2 (Version None)
Quarter: 2007Q3

REPORT INFORMATION
  Report Type: 
  Country: None (occurrence: None)
  Receive Date: 20070912
  Receipt Date: 20070831
  Transmission Date: 20080115
  Serious: Yes (Death)
  Sender: FDA-Public Use
  Company Number: US020956

PATIENT
  Age: 71 Year
  Sex: Male

DRUGS (3)
  1. TRISENOX [Suspect]
     Indication: ACUTE PROMYELOCYTIC LEUKAEMIA
     Dosage: 0.15 MG/KG QD INTRAVENOUS
     Route: 042
     Dates: start: 20070618, end: 20070801
  2. POTASSIUM CHLORIDE [Concomitant]
  3. VALACYCLOVIR HCL [Concomitant]

REACTIONS (4)
  - CARDIAC FAILURE ACUTE [None]
  - ELECTROCARDIOGRAM QT PROLONGED [None]
  - EMPHYSEMA [None]
  - EXTRASYSTOLES [None]
